FAERS Safety Report 22089510 (Version 1)
Quarter: 2023Q1

REPORT INFORMATION
  Report Type: Spontaneous
  Country: US (occurrence: US)
  Receive Date: 20230313
  Receipt Date: 20230313
  Transmission Date: 20230417
  Serious: No
  Sender: FDA-Public Use
  Company Number: US-FreseniusKabi-FK202302710

PATIENT
  Age: 71 Year
  Sex: Female
  Weight: 128 kg

DRUGS (1)
  1. SENSORCAINE MPF [Suspect]
     Active Substance: BUPIVACAINE HYDROCHLORIDE
     Indication: Nerve block
     Dosage: SUPRACLAVICULAR BLOCK WITH CATHETER, 30 ML INJECTED.

REACTIONS (1)
  - Drug ineffective [Unknown]
